FAERS Safety Report 4585417-7 (Version None)
Quarter: 2005Q1

REPORT INFORMATION
  Report Type: 
  Country: None (occurrence: None)
  Receive Date: 20050217
  Receipt Date: 20040408
  Transmission Date: 20050727
  Serious: Yes (Life-Threatening, Hospitalization)
  Sender: FDA-Public Use
  Company Number: DE-ABBOTT-04P-062-0257802-00

PATIENT
  Sex: Male
  Weight: 75 kg

DRUGS (11)
  1. HUMIRA [Suspect]
     Indication: RHEUMATOID ARTHRITIS
     Route: 058
     Dates: start: 20031105
  2. PREDNISOLONE [Concomitant]
     Indication: RHEUMATOID ARTHRITIS
     Route: 048
     Dates: start: 19990401, end: 20040101
  3. PREDNISOLONE [Concomitant]
     Route: 048
     Dates: start: 20040101
  4. LEKOVIT CA [Concomitant]
     Indication: OSTEOPOROSIS
     Route: 048
     Dates: start: 20020101
  5. LEKOVIT CA [Concomitant]
     Route: 048
     Dates: start: 20020101
  6. LORATADINE [Concomitant]
     Indication: PRURITUS
     Route: 048
     Dates: start: 20021227
  7. METHOTREXATE SODIUM [Concomitant]
     Indication: DRUG USE FOR UNKNOWN INDICATION
  8. CLOPIDOGREL BISULFATE [Concomitant]
     Indication: CORONARY ARTERY DISEASE
     Route: 048
     Dates: start: 20040713
  9. METOPROLOL [Concomitant]
     Indication: CORONARY ARTERY DISEASE
     Route: 048
     Dates: start: 20040713
  10. SIMVASTATIN [Concomitant]
     Indication: CORONARY ARTERY DISEASE
     Route: 048
     Dates: start: 20040713
  11. ACETYLSALICYLIC ACID [Concomitant]
     Indication: CORONARY ARTERY DISEASE
     Route: 048
     Dates: start: 20040713

REACTIONS (5)
  - ANGINA PECTORIS [None]
  - MENISCUS LESION [None]
  - PRURITUS [None]
  - RASH ERYTHEMATOUS [None]
  - RASH PUSTULAR [None]
